FAERS Safety Report 15833266 (Version 1)
Quarter: 2019Q1

REPORT INFORMATION
  Report Type: Spontaneous
  Country: US (occurrence: US)
  Receive Date: 20190116
  Receipt Date: 20190116
  Transmission Date: 20190417
  Serious: Yes (Life-Threatening, Hospitalization)
  Sender: FDA-Public Use
  Company Number: None

PATIENT
  Age: 47 Year
  Sex: Male
  Weight: 76.3 kg

DRUGS (1)
  1. AMOXICILLIN. [Suspect]
     Active Substance: AMOXICILLIN
     Indication: TOOTHACHE
     Dosage: ?          OTHER FREQUENCY:ONCE;?
     Route: 048

REACTIONS (4)
  - Dyspnoea [None]
  - Pruritus [None]
  - Swelling [None]
  - Urticaria [None]

NARRATIVE: CASE EVENT DATE: 20180902
